FAERS Safety Report 10578445 (Version 1)
Quarter: 2014Q4

REPORT INFORMATION
  Report Type: Spontaneous
  Country: US (occurrence: None)
  Receive Date: 20141107
  Receipt Date: 20141107
  Transmission Date: 20150529
  Serious: Yes (Other)
  Sender: FDA-Public Use
  Company Number: 1329223

PATIENT

DRUGS (1)
  1. NAPROXEN (NAPROXEN) [Suspect]
     Active Substance: NAPROXEN
     Indication: PRODUCT USED FOR UNKNOWN INDICATION

REACTIONS (7)
  - Diarrhoea [None]
  - Nausea [None]
  - Gastritis erosive [None]
  - Gastritis [None]
  - Abdominal pain upper [None]
  - Dyspepsia [None]
  - Gastric ulcer [None]
